FAERS Safety Report 6152047-5 (Version None)
Quarter: 2009Q2

REPORT INFORMATION
  Report Type: 
  Country: None (occurrence: None)
  Receive Date: 20090410
  Receipt Date: 20090403
  Transmission Date: 20091009
  Serious: Yes (Hospitalization)
  Sender: FDA-Public Use
  Company Number: US-AMGEN-QUU334322

PATIENT
  Sex: Male

DRUGS (15)
  1. EPOGEN [Suspect]
     Indication: DIALYSIS
     Route: 042
     Dates: end: 20090217
  2. SENSIPAR [Suspect]
     Indication: HYPERPARATHYROIDISM SECONDARY
  3. MINOXIDIL [Concomitant]
     Route: 048
  4. RENAGEL [Concomitant]
  5. FOLIC ACID [Concomitant]
     Route: 048
  6. VITAMIN B-12 [Concomitant]
     Route: 048
  7. CLONIDINE [Concomitant]
     Route: 048
  8. FOSRENOL [Concomitant]
  9. VITAMIN D [Concomitant]
  10. DOXAZOSIN MESYLATE [Concomitant]
  11. VASOTEC [Concomitant]
  12. NIFEDIPINE [Concomitant]
     Route: 048
  13. METOPROLOL TARTRATE [Concomitant]
     Route: 048
  14. ZEMPLAR [Concomitant]
  15. SEVELAMER [Concomitant]

REACTIONS (4)
  - ANAEMIA [None]
  - LOW TURNOVER OSTEOPATHY [None]
  - PARVOVIRUS B19 SEROLOGY POSITIVE [None]
  - THROMBOCYTOPENIA [None]
